FAERS Safety Report 8118723-X (Version None)
Quarter: 2012Q1

REPORT INFORMATION
  Report Type: 
  Country: None (occurrence: None)
  Receive Date: 20120207
  Receipt Date: 20120131
  Transmission Date: 20120608
  Serious: Yes (Other)
  Sender: FDA-Public Use
  Company Number: 2012SP000380

PATIENT
  Age: 34 Year
  Sex: Female
  Weight: 74 kg

DRUGS (4)
  1. LUNESTA [Suspect]
     Indication: INSOMNIA
     Route: 048
  2. BENADRYL [Suspect]
     Indication: SLEEP DISORDER
  3. AMBIEN [Suspect]
     Indication: SLEEP DISORDER
  4. VERSED [Suspect]
     Indication: SLEEP DISORDER

REACTIONS (4)
  - DRUG INEFFECTIVE [None]
  - GALLBLADDER DISORDER [None]
  - LOGORRHOEA [None]
  - MANIA [None]
